FAERS Safety Report 4942196-9 (Version None)
Quarter: 2006Q1

REPORT INFORMATION
  Report Type: 
  Country: None (occurrence: None)
  Receive Date: 20060313
  Receipt Date: 20050901
  Transmission Date: 20060701
  Serious: No
  Sender: FDA-Public Use
  Company Number: US-GLAXOSMITHKLINE-A0573011A

PATIENT
  Sex: Female

DRUGS (1)
  1. NICORETTE (ORANGE) [Suspect]

REACTIONS (3)
  - COLD SWEAT [None]
  - FEELING COLD [None]
  - PALPITATIONS [None]
